FAERS Safety Report 14102519 (Version 3)
Quarter: 2019Q1

REPORT INFORMATION
  Report Type: Report from Study
  Country: None (occurrence: US)
  Receive Date: 20171018
  Receipt Date: 20190328
  Transmission Date: 20190417
  Serious: Yes (Other)
  Sender: FDA-Public Use
  Company Number: US-ABBVIE-17K-163-2130512-00

PATIENT
  Age: 60 Year
  Sex: Female

DRUGS (1)
  1. HUMIRA [Suspect]
     Active Substance: ADALIMUMAB
     Indication: RHEUMATOID ARTHRITIS
     Route: 058

REACTIONS (9)
  - Systemic lupus erythematosus [Recovering/Resolving]
  - Hepatic cyst [Not Recovered/Not Resolved]
  - Nausea [Not Recovered/Not Resolved]
  - Ulcer [Unknown]
  - Pain in extremity [Recovering/Resolving]
  - Intervertebral disc protrusion [Recovering/Resolving]
  - Fibromyalgia [Unknown]
  - Scoliosis [Recovering/Resolving]
  - Spinal cord compression [Recovering/Resolving]

NARRATIVE: CASE EVENT DATE: 20171011
